FAERS Safety Report 17265071 (Version 4)
Quarter: 2020Q4

REPORT INFORMATION
  Report Type: Report from Study
  Country: None (occurrence: US)
  Receive Date: 20200113
  Receipt Date: 20201101
  Transmission Date: 20210113
  Serious: Yes (Hospitalization, Other)
  Sender: FDA-Public Use
  Company Number: US-ABBVIE-20P-163-3230852-00

PATIENT
  Age: 64 Year
  Sex: Female

DRUGS (2)
  1. RINVOQ [Suspect]
     Active Substance: UPADACITINIB
     Route: 048
  2. RINVOQ [Suspect]
     Active Substance: UPADACITINIB
     Indication: RHEUMATOID ARTHRITIS
     Route: 048

REACTIONS (17)
  - Cerebrovascular accident [Recovering/Resolving]
  - Urinary tract infection [Unknown]
  - Diabetes mellitus [Unknown]
  - Formication [Unknown]
  - Dyspepsia [Unknown]
  - Asthenia [Unknown]
  - Shoulder operation [Unknown]
  - Productive cough [Unknown]
  - Musculoskeletal disorder [Unknown]
  - Balance disorder [Unknown]
  - Head discomfort [Unknown]
  - Cardiac disorder [Unknown]
  - Paraesthesia [Unknown]
  - Insomnia [Unknown]
  - Inflammatory marker increased [Unknown]
  - Pharyngeal disorder [Unknown]
  - Pain [Unknown]

NARRATIVE: CASE EVENT DATE: 202001
